FAERS Safety Report 6187630-4 (Version None)
Quarter: 2009Q2

REPORT INFORMATION
  Report Type: 
  Country: None (occurrence: None)
  Receive Date: 20090511
  Receipt Date: 20090506
  Transmission Date: 20091009
  Serious: Yes (Hospitalization)
  Sender: FDA-Public Use
  Company Number: SP02374

PATIENT
  Age: 80 Year
  Sex: Female

DRUGS (1)
  1. MOVIPREP [Suspect]
     Indication: COLONOSCOPY
     Dosage: (SPLIT DOSE), ORAL
     Route: 048
     Dates: start: 20090504, end: 20090505

REACTIONS (4)
  - FALL [None]
  - HAEMATOMA [None]
  - HEAD INJURY [None]
  - LOSS OF CONSCIOUSNESS [None]
